FAERS Safety Report 12396236 (Version 5)
Quarter: 2016Q4

REPORT INFORMATION
  Report Type: Spontaneous
  Country: DE (occurrence: DE)
  Receive Date: 20160524
  Receipt Date: 20161108
  Transmission Date: 20170207
  Serious: Yes (Disabling)
  Sender: FDA-Public Use
  Company Number: DE-AMGEN-DEUSP2016042997

PATIENT
  Age: 66 Year
  Sex: Female
  Weight: 93 kg

DRUGS (4)
  1. PROCORALAN [Suspect]
     Active Substance: IVABRADINE
     Indication: TACHYCARDIA
     Dosage: 5 MG, QD
     Route: 048
     Dates: start: 201601, end: 201605
  2. VALSARTAN. [Concomitant]
     Active Substance: VALSARTAN
     Indication: HYPERTENSION
     Dosage: UNK
     Dates: start: 201512
  3. TORASEMIDE [Concomitant]
     Active Substance: TORSEMIDE
     Indication: HYPERTENSION
     Dosage: UNK
     Dates: start: 201601
  4. LEVOTHYROXINE SODIUM. [Concomitant]
     Active Substance: LEVOTHYROXINE SODIUM
     Indication: HYPOTHYROIDISM
     Dosage: UNK
     Dates: start: 1976

REACTIONS (3)
  - Photophobia [Recovered/Resolved]
  - Headache [Recovering/Resolving]
  - Photopsia [Recovered/Resolved]

NARRATIVE: CASE EVENT DATE: 20160115
